FAERS Safety Report 8066818-1 (Version None)
Quarter: 2011Q4

REPORT INFORMATION
  Report Type: 
  Country: None (occurrence: None)
  Receive Date: 20111221
  Receipt Date: 20110128
  Transmission Date: 20120403
  Serious: Yes (Death, Other)
  Sender: FDA-Public Use
  Company Number: PHHY2010US86246

PATIENT
  Age: 83 Year
  Sex: Male

DRUGS (10)
  1. METOLAZONE [Concomitant]
  2. CRESTOR [Concomitant]
  3. METOPROLOL TARTRATE [Concomitant]
  4. PROTONIX [Concomitant]
  5. BENIZOL (TOLOZOLINE HYDROCHLORIDE) [Concomitant]
  6. EXJADE [Suspect]
     Indication: MYELODYSPLASTIC SYNDROME
     Dosage: 1000 MG/DAY, ORAL
     Route: 048
     Dates: start: 20101117, end: 20101220
  7. TORSEMIDE [Concomitant]
  8. HYDREA [Concomitant]
  9. ALLOPURINOL [Concomitant]
  10. OXYCONTIN [Concomitant]

REACTIONS (9)
  - BLOOD UREA INCREASED [None]
  - FATIGUE [None]
  - DYSPNOEA [None]
  - RENAL FAILURE [None]
  - VOMITING [None]
  - HEPATIC FAILURE [None]
  - ABDOMINAL DISTENSION [None]
  - NEOPLASM MALIGNANT [None]
  - BLOOD ALKALINE PHOSPHATASE INCREASED [None]
